FAERS Safety Report 6804804-7 (Version None)
Quarter: 2010Q2

REPORT INFORMATION
  Report Type: 
  Country: None (occurrence: None)
  Receive Date: 20100628
  Receipt Date: 20100622
  Transmission Date: 20101027
  Serious: Yes (Hospitalization)
  Sender: FDA-Public Use
  Company Number: SE-ROCHE-710198

PATIENT

DRUGS (2)
  1. BEVACIZUMAB [Suspect]
     Dosage: ROUTE, FORM: INFUSION, DOSE AND FREQUENCY AS PER PROTOCOL, LAST DOSE TAKEN ON 10 JUNE 2010
     Route: 042
     Dates: start: 20100429
  2. ERLOTINIB [Suspect]
     Dosage: ROUTE, FORM, DOSE AND FREQUENCY AS PER PROTOCOL, LAST DOSE TAKEN ON 10 JUNE 2010,TEMPORARILY STOPPED
     Route: 048
     Dates: start: 20100429, end: 20100615

REACTIONS (4)
  - ASTHENIA [None]
  - HEADACHE [None]
  - HYPOKALAEMIA [None]
  - VERTIGO [None]
